FAERS Safety Report 9962501 (Version 1)
Quarter: 2014Q1

REPORT INFORMATION
  Report Type: Report from Study
  Country: US (occurrence: US)
  Receive Date: 20140305
  Receipt Date: 20140305
  Transmission Date: 20141002
  Serious: No
  Sender: FDA-Public Use
  Company Number: US-ABBVIE-13P-163-1110830-00

PATIENT
  Age: 70 Year
  Sex: Female

DRUGS (6)
  1. HUMIRA [Suspect]
     Indication: CROHN^S DISEASE
     Dates: start: 201303
  2. CYMBALTA [Concomitant]
     Indication: DEPRESSION
  3. ZANTAC [Concomitant]
     Indication: GASTROOESOPHAGEAL REFLUX DISEASE
  4. DOXEPIN [Concomitant]
     Indication: INSOMNIA
     Dosage: AT BEDTIME
  5. AMBIEN [Concomitant]
     Indication: INSOMNIA
     Dosage: AT NIGHT
  6. XANAX [Concomitant]
     Indication: INSOMNIA
     Dosage: AT BEDTIME

REACTIONS (1)
  - Bronchitis [Not Recovered/Not Resolved]
